FAERS Safety Report 4761673-7 (Version None)
Quarter: 2005Q3

REPORT INFORMATION
  Report Type: 
  Country: None (occurrence: None)
  Receive Date: 20050906
  Receipt Date: 20050825
  Transmission Date: 20060218
  Serious: Yes (Life-Threatening)
  Sender: FDA-Public Use
  Company Number: TR-NOVOPROD-246565

PATIENT
  Age: 44 Year
  Sex: Female
  Weight: 97 kg

DRUGS (4)
  1. LEVEMIR [Suspect]
     Indication: DIABETES MELLITUS NON-INSULIN-DEPENDENT
     Dosage: 24 IU, QD
     Route: 058
     Dates: start: 20050525
  2. DIOVAN HCT [Concomitant]
  3. AMARYL [Concomitant]
  4. GLUCOBAY [Concomitant]

REACTIONS (1)
  - MYOCARDIAL INFARCTION [None]
